FAERS Safety Report 4472180-3 (Version None)
Quarter: 2004Q4

REPORT INFORMATION
  Report Type: 
  Country: None (occurrence: None)
  Receive Date: 20041008
  Receipt Date: 20040921
  Transmission Date: 20050328
  Serious: Yes (Other)
  Sender: FDA-Public Use
  Company Number: USA040978801

PATIENT
  Age: 52 Year
  Sex: Male

DRUGS (7)
  1. CIALIS [Suspect]
     Dosage: 20 MG
     Dates: start: 20040101
  2. LIPITOR [Concomitant]
  3. GINGKO BILOBA [Concomitant]
  4. SAW PALMETTO [Concomitant]
  5. GARLIC [Concomitant]
  6. ASPIRIN [Concomitant]
  7. MULTI-VITAMIN [Concomitant]

REACTIONS (13)
  - ABDOMINAL DISCOMFORT [None]
  - ANAL DISCOMFORT [None]
  - BLISTER [None]
  - DERMATITIS BULLOUS [None]
  - DRUG EFFECT DECREASED [None]
  - ERYTHEMA MULTIFORME [None]
  - HERPES VIRUS INFECTION [None]
  - MOUTH ULCERATION [None]
  - ORAL DISCOMFORT [None]
  - PRURITUS [None]
  - RASH [None]
  - STEVENS-JOHNSON SYNDROME [None]
  - SWELLING FACE [None]
